FAERS Safety Report 9347877 (Version 2)
Quarter: 2013Q3

REPORT INFORMATION
  Report Type: Spontaneous
  Country: FR (occurrence: FR)
  Receive Date: 20130614
  Receipt Date: 20130703
  Transmission Date: 20140515
  Serious: Yes (Hospitalization, Other)
  Sender: FDA-Public Use
  Company Number: FR-MERCK-1306FRA003970

PATIENT
  Age: 64 Year
  Sex: Male

DRUGS (3)
  1. INTRONA [Suspect]
     Indication: CHRONIC MYELOID LEUKAEMIA
     Dosage: 1.5 MILLION IU, TIW
     Route: 058
     Dates: start: 1999, end: 2007
  2. GLIVEC [Suspect]
     Indication: CHRONIC MYELOID LEUKAEMIA
     Dosage: 400 MG, UNK
     Route: 048
     Dates: start: 2007, end: 20121105
  3. GLIVEC [Suspect]
     Dosage: 300 MG, UNK
     Route: 048
     Dates: start: 20121106, end: 20130507

REACTIONS (1)
  - Pancreatic carcinoma [Not Recovered/Not Resolved]
